FAERS Safety Report 7082833-9 (Version None)
Quarter: 2010Q4

REPORT INFORMATION
  Report Type: 
  Country: None (occurrence: None)
  Receive Date: 20101104
  Receipt Date: 20100126
  Transmission Date: 20110411
  Serious: No
  Sender: FDA-Public Use
  Company Number: A0841489A

PATIENT
  Age: 6 Year
  Sex: Male

DRUGS (2)
  1. VERDESO [Suspect]
     Dosage: 1APP PER DAY
     Route: 061
     Dates: start: 20100115, end: 20100125
  2. NO CONCURRENT MEDICATION [Concomitant]

REACTIONS (2)
  - DRUG INEFFECTIVE [None]
  - ILL-DEFINED DISORDER [None]
